FAERS Safety Report 9495223 (Version 1)
Quarter: 2013Q3

REPORT INFORMATION
  Report Type: Spontaneous
  Country: BR (occurrence: BR)
  Receive Date: 20130903
  Receipt Date: 20130903
  Transmission Date: 20140515
  Serious: Yes (Hospitalization)
  Sender: FDA-Public Use
  Company Number: BR-PFIZER INC-2013250970

PATIENT
  Age: 66 Year
  Sex: Male

DRUGS (2)
  1. LIPITOR [Suspect]
     Dosage: 1 DF, 1X/DAY
     Dates: start: 201306
  2. DIUBLOK [Concomitant]
     Indication: HYPERTENSION
     Dosage: UNK
     Dates: start: 2008

REACTIONS (1)
  - Coronary artery disease [Unknown]
